FAERS Safety Report 8854566 (Version 3)
Quarter: 2012Q4

REPORT INFORMATION
  Report Type: Report from Study
  Country: US (occurrence: US)
  Receive Date: 20121023
  Receipt Date: 20121113
  Transmission Date: 20130627
  Serious: No
  Sender: FDA-Public Use
  Company Number: US-VERTEX PHARMACEUTICAL INC.-2012-022936

PATIENT
  Sex: Male

DRUGS (4)
  1. VX-770 [Suspect]
     Indication: CYSTIC FIBROSIS
     Dosage: 150 UNK, UNK
     Route: 048
     Dates: start: 20101014, end: 20120815
  2. VX-770 [Suspect]
     Dosage: 150 mg, bid
     Route: 048
     Dates: start: 20120816
  3. LISINOPRIL [Concomitant]
     Indication: HYPERTENSION
     Dosage: UNK
     Dates: start: 2007, end: 20120710
  4. LISINOPRIL [Concomitant]
     Dosage: 10 mg, qd
     Route: 048
     Dates: start: 20120710

REACTIONS (1)
  - Pulmonary function test decreased [Not Recovered/Not Resolved]
